FAERS Safety Report 23628844 (Version 4)
Quarter: 2024Q4

REPORT INFORMATION
  Report Type: Spontaneous
  Country: US (occurrence: US)
  Receive Date: 20240313
  Receipt Date: 20241023
  Transmission Date: 20250115
  Serious: No
  Sender: BLUEPRINT MEDICINES
  Company Number: US-Blueprint Medicines Corporation-2714

PATIENT
  Sex: Female

DRUGS (5)
  1. AYVAKIT [Suspect]
     Active Substance: AVAPRITINIB
     Indication: Systemic mastocytosis
     Dosage: TAKE ONE 25MG TABLET BY MOUTH WITH ONE 50MG TABLET FOR A TOTAL OF 75MG DAILY
     Route: 048
     Dates: start: 20230708
  2. AYVAKIT [Suspect]
     Active Substance: AVAPRITINIB
     Indication: Advanced systemic mastocytosis
     Dosage: TAKE ONE 25MG TABLET BY MOUTH WITH ONE 50MG TABLET FOR A TOTAL OF 75MG DAILY
     Route: 048
     Dates: start: 20230708
  3. AYVAKIT [Suspect]
     Active Substance: AVAPRITINIB
     Dosage: 100 MG ON TUESDAY, THURSDAY, SATURDAY, AND SUNDAY AND 75 MG ON MONDAY, WEDNESDAY, AND FRIDAY.
     Route: 048
     Dates: start: 2023
  4. AYVAKIT [Suspect]
     Active Substance: AVAPRITINIB
     Dosage: 100 MG ON TUESDAY, THURSDAY, SATURDAY, AND SUNDAY AND 75 MG ON MONDAY, WEDNESDAY, AND FRIDAY.
     Route: 048
     Dates: start: 2023
  5. DEXAMETHASONE [Concomitant]
     Active Substance: DEXAMETHASONE
     Indication: Nausea
     Route: 065

REACTIONS (3)
  - Adverse drug reaction [Unknown]
  - Nausea [Unknown]
  - Abdominal discomfort [Unknown]
